FAERS Safety Report 10301565 (Version 12)
Quarter: 2015Q4

REPORT INFORMATION
  Report Type: Report from Study
  Country: US (occurrence: US)
  Receive Date: 20140714
  Receipt Date: 20151027
  Transmission Date: 20160304
  Serious: Yes (Death, Life-Threatening, Hospitalization, Other)
  Sender: FDA-Public Use
  Company Number: PHHY2014US085731

PATIENT
  Age: 48 Year
  Sex: Male
  Weight: 93 kg

DRUGS (14)
  1. HYDROCODONE [Suspect]
     Active Substance: HYDROCODONE
     Indication: PRODUCT USED FOR UNKNOWN INDICATION
     Dosage: UNK
     Route: 065
  2. PROGRAF [Suspect]
     Active Substance: TACROLIMUS\TACROLIMUS ANHYDROUS
     Indication: RENAL TRANSPLANT
     Dosage: 0.5 MG, BID
     Route: 048
     Dates: start: 20130709, end: 20130712
  3. PREDNISONE. [Suspect]
     Active Substance: PREDNISONE
     Indication: PRODUCT USED FOR UNKNOWN INDICATION
     Dosage: 20 MG, QD
     Route: 048
     Dates: start: 20130714
  4. THYMOGLOBULIN [Suspect]
     Active Substance: LAPINE T-LYMPHOCYTE IMMUNE GLOBULIN
     Indication: KIDNEY TRANSPLANT REJECTION
     Dosage: 150 MG, 4 DOSES
     Route: 042
     Dates: start: 20130712
  5. HUMULIN R [Concomitant]
     Active Substance: INSULIN HUMAN
     Indication: PRODUCT USED FOR UNKNOWN INDICATION
     Dosage: UNK
     Route: 065
     Dates: start: 20130710
  6. PANTOPRAZOLE [Concomitant]
     Active Substance: PANTOPRAZOLE SODIUM
     Indication: PRODUCT USED FOR UNKNOWN INDICATION
     Dosage: UNK
     Route: 065
     Dates: start: 20130710
  7. SIMULECT [Suspect]
     Active Substance: BASILIXIMAB
     Indication: RENAL TRANSPLANT
     Dosage: 20 MG, UNK
     Route: 042
     Dates: start: 20130709, end: 20130709
  8. MORPHINE [Suspect]
     Active Substance: MORPHINE
     Indication: PAIN
     Dosage: 2 MG, PRN
     Route: 042
     Dates: start: 20130709
  9. SOLU-MEDROL [Suspect]
     Active Substance: METHYLPREDNISOLONE SODIUM SUCCINATE
     Indication: PRODUCT USED FOR UNKNOWN INDICATION
     Dosage: UNK
     Route: 065
  10. BUMEX [Concomitant]
     Active Substance: BUMETANIDE
     Indication: PRODUCT USED FOR UNKNOWN INDICATION
     Dosage: UNK
     Route: 065
     Dates: start: 20130709
  11. MYFORTIC [Suspect]
     Active Substance: MYCOPHENOLATE SODIUM
     Indication: RENAL TRANSPLANT
     Dosage: 1080 MG, BID
     Route: 048
     Dates: start: 20130717, end: 20130723
  12. HEPARIN [Suspect]
     Active Substance: HEPARIN SODIUM
     Indication: HEART VALVE REPLACEMENT
     Dosage: 100 U, UNK
     Route: 041
     Dates: start: 20130710
  13. THYMOGLOBULIN [Suspect]
     Active Substance: LAPINE T-LYMPHOCYTE IMMUNE GLOBULIN
     Dosage: 150 MG, 4 DOSES
     Route: 042
     Dates: start: 20130714, end: 20130714
  14. DEMEROL [Concomitant]
     Active Substance: MEPERIDINE HYDROCHLORIDE
     Indication: PRODUCT USED FOR UNKNOWN INDICATION
     Dosage: UNK
     Route: 065
     Dates: start: 20130709

REACTIONS (41)
  - Tachycardia [Recovering/Resolving]
  - Liver function test abnormal [Not Recovered/Not Resolved]
  - Complications of transplanted kidney [Recovered/Resolved]
  - Pancreatitis [Not Recovered/Not Resolved]
  - Abdominal distension [Unknown]
  - Tachypnoea [Recovering/Resolving]
  - Renal tubular necrosis [Recovered/Resolved with Sequelae]
  - Nausea [Recovering/Resolving]
  - Lipase increased [Unknown]
  - Intestinal obstruction [Not Recovered/Not Resolved]
  - Postoperative hernia [Unknown]
  - Wound secretion [Unknown]
  - Sinus tachycardia [Unknown]
  - Acute kidney injury [Not Recovered/Not Resolved]
  - Intra-abdominal haematoma [Unknown]
  - Hypersensitivity [Recovering/Resolving]
  - Transplant failure [Recovered/Resolved with Sequelae]
  - Leukocytosis [Unknown]
  - Constipation [Unknown]
  - Septic shock [Recovered/Resolved with Sequelae]
  - Atelectasis [Unknown]
  - Pulmonary congestion [Unknown]
  - Haematocrit decreased [Unknown]
  - Hepatic steatosis [Unknown]
  - Intra-abdominal haemorrhage [Not Recovered/Not Resolved]
  - Pain [Recovering/Resolving]
  - Anxiety [Unknown]
  - Decreased appetite [Unknown]
  - Peritonitis [Not Recovered/Not Resolved]
  - Hyperbilirubinaemia [Not Recovered/Not Resolved]
  - Cholelithiasis [Recovered/Resolved]
  - Haemorrhage [Unknown]
  - Abdominal pain [Unknown]
  - Immune system disorder [Not Recovered/Not Resolved]
  - Sepsis [Fatal]
  - Intestinal ischaemia [Not Recovered/Not Resolved]
  - Acute respiratory failure [Not Recovered/Not Resolved]
  - Appendicitis [Recovered/Resolved]
  - Vomiting [Recovered/Resolved]
  - Anaemia [Unknown]
  - Hypertension [Recovering/Resolving]

NARRATIVE: CASE EVENT DATE: 20130717
